FAERS Safety Report 16445218 (Version 7)
Quarter: 2021Q2

REPORT INFORMATION
  Report Type: Report from Study
  Country: JP (occurrence: JP)
  Receive Date: 20190618
  Receipt Date: 20210426
  Transmission Date: 20210716
  Serious: Yes (Death, Hospitalization)
  Sender: FDA-Public Use
  Company Number: JP-ROCHE-2326644

PATIENT
  Age: 64 Year
  Sex: Female
  Weight: 36.4 kg

DRUGS (6)
  1. NEXIUM [Concomitant]
     Active Substance: ESOMEPRAZOLE MAGNESIUM
     Indication: GASTROOESOPHAGEAL REFLUX DISEASE
     Route: 048
     Dates: start: 20171027
  2. TOCILIZUMAB. [Suspect]
     Active Substance: TOCILIZUMAB
     Indication: SCLERODERMA
     Route: 058
     Dates: start: 20181108, end: 20190510
  3. PREDONINE [Concomitant]
     Active Substance: PREDNISOLONE
     Indication: SCLERODERMA
     Route: 048
     Dates: start: 20161201
  4. HEPARINOID [Concomitant]
     Active Substance: CHONDROITIN SULFATE (BOVINE)
     Indication: ECZEMA ASTEATOTIC
     Dosage: PROPER QUANTITY
     Route: 061
     Dates: start: 20181206
  5. MOHRUS [Concomitant]
     Active Substance: KETOPROFEN
     Indication: ARTHRALGIA
     Dosage: ONE PIECE
     Route: 061
     Dates: start: 20181108
  6. PROPETO [Concomitant]
     Active Substance: PETROLATUM
     Indication: ECZEMA ASTEATOTIC
     Dosage: PROPER QUANTITY
     Route: 061
     Dates: start: 20190228

REACTIONS (4)
  - Intracranial tumour haemorrhage [Recovered/Resolved]
  - Lymphoma [Fatal]
  - Immunodeficiency [Fatal]
  - Hydrocephalus [Recovered/Resolved]

NARRATIVE: CASE EVENT DATE: 20190516
